FAERS Safety Report 10671091 (Version 1)
Quarter: 2014Q4

REPORT INFORMATION
  Report Type: Spontaneous
  Country: US (occurrence: None)
  Receive Date: 20141219
  Receipt Date: 20141219
  Transmission Date: 20150529
  Serious: Yes (Other)
  Sender: FDA-Public Use
  Company Number: US2014037160

PATIENT
  Sex: Female

DRUGS (1)
  1. SENSODYNE PRONAMEL [Suspect]
     Active Substance: POTASSIUM NITRATE\SODIUM FLUORIDE
     Indication: PRODUCT USED FOR UNKNOWN INDICATION
     Route: 004

REACTIONS (5)
  - Tongue ulceration [None]
  - Stress [None]
  - Vitamin B complex deficiency [None]
  - Lip and/or oral cavity cancer [None]
  - Oral pain [None]
